FAERS Safety Report 4462092-3 (Version None)
Quarter: 2004Q3

REPORT INFORMATION
  Report Type: 
  Country: None (occurrence: None)
  Receive Date: 20040924
  Receipt Date: 20040924
  Transmission Date: 20050211
  Serious: Yes (Other)
  Sender: FDA-Public Use
  Company Number: None

PATIENT
  Sex: Female
  Weight: 113.3993 kg

DRUGS (1)
  1. LOTRISONE [Suspect]
     Indication: PSORIASIS

REACTIONS (2)
  - PHARMACEUTICAL PRODUCT COMPLAINT [None]
  - PSORIASIS [None]
